FAERS Safety Report 18944336 (Version 3)
Quarter: 2021Q1

REPORT INFORMATION
  Report Type: Spontaneous
  Country: DE (occurrence: DE)
  Receive Date: 20210226
  Receipt Date: 20210312
  Transmission Date: 20210420
  Serious: Yes (Other)
  Sender: FDA-Public Use
  Company Number: DE-AUROBINDO-AUR-APL-2021-007800

PATIENT
  Age: 57 Year
  Sex: Male

DRUGS (4)
  1. BICTEGRAVIR;EMTRICITABINE;TENOFOVIR [Suspect]
     Active Substance: BICTEGRAVIR\EMTRICITABINE\TENOFOVIR ALAFENAMIDE
     Indication: HIV INFECTION
     Dosage: 1 DOSAGE FORM, ONCE A DAY (50 MG/200 MG/25 MG)
     Route: 048
     Dates: start: 201702
  2. IBUPROFEN. [Suspect]
     Active Substance: IBUPROFEN
     Indication: SPINAL PAIN
     Dosage: 3 PIECES DAILY
     Route: 065
     Dates: start: 201902
  3. MIRTALICH [Suspect]
     Active Substance: MIRTAZAPINE
     Indication: SLEEP DISORDER
     Dosage: 15 MILLIGRAM, ONCE A DAY
     Route: 048
     Dates: start: 202006
  4. QUININE SULFATE. [Suspect]
     Active Substance: QUININE SULFATE
     Indication: RESTLESS LEGS SYNDROME
     Dosage: 200 MILLIGRAM, ONCE A DAY
     Route: 065
     Dates: start: 202006

REACTIONS (5)
  - Pyrexia [Recovered/Resolved]
  - Limb discomfort [Recovered/Resolved]
  - Hallucination [Recovered/Resolved]
  - Headache [Recovered/Resolved]
  - Chills [Recovered/Resolved]

NARRATIVE: CASE EVENT DATE: 20210119
